FAERS Safety Report 26184902 (Version 2)
Quarter: 2025Q4

REPORT INFORMATION
  Report Type: Spontaneous
  Country: US (occurrence: US)
  Receive Date: 20251222
  Receipt Date: 20251231
  Transmission Date: 20260117
  Serious: No
  Sender: ROCHE
  Company Number: US-ROCHE-10000460074

PATIENT
  Age: 67 Year
  Sex: Male

DRUGS (11)
  1. ERIVEDGE [Suspect]
     Active Substance: VISMODEGIB
     Indication: Basal cell carcinoma
     Dosage: TAKE 1 CAPSULE BY MOUTH DAILY EVERY OTHER WEEK AS DIRECTED
     Route: 048
  2. AMLODIPINE B TAB 5MG [Concomitant]
  3. BUPROPION HC TB1 200MG [Concomitant]
  4. HYDROCHLOROT TAB 25MG [Concomitant]
  5. LIDOCAIN- PR CRE 2.5-2.5% [Concomitant]
  6. MELOXICAM [Concomitant]
     Active Substance: MELOXICAM
  7. METFORMIN HC TAB 500MG [Concomitant]
  8. METOPROLOL T TAB 100MG [Concomitant]
  9. POTASSIUM CH TBC 10MEQ [Concomitant]
  10. VALSARTAN [Concomitant]
     Active Substance: VALSARTAN
  11. TYLENOL PME TAB 500- 25 mg [Concomitant]

REACTIONS (7)
  - Pain [Not Recovered/Not Resolved]
  - Depression [Not Recovered/Not Resolved]
  - Sluggishness [Not Recovered/Not Resolved]
  - Macule [Not Recovered/Not Resolved]
  - Paraesthesia [Not Recovered/Not Resolved]
  - Nausea [Not Recovered/Not Resolved]
  - Back pain [Unknown]

NARRATIVE: CASE EVENT DATE: 20251127
